FAERS Safety Report 7083714-7 (Version None)
Quarter: 2010Q4

REPORT INFORMATION
  Report Type: 
  Country: None (occurrence: None)
  Receive Date: 20101104
  Receipt Date: 20101025
  Transmission Date: 20110411
  Serious: Yes (Death, Hospitalization)
  Sender: FDA-Public Use
  Company Number: DE-ELI_LILLY_AND_COMPANY-DE201010005436

PATIENT
  Age: 84 Year
  Sex: Male

DRUGS (2)
  1. FORTEO [Suspect]
     Indication: OSTEOPOROSIS
     Dosage: UNK, DAILY (1/D)
     Route: 058
  2. NOVALGIN [Concomitant]
     Dosage: UNK, DAILY (1/D)

REACTIONS (2)
  - HOSPITALISATION [None]
  - PNEUMONIA [None]
